FAERS Safety Report 7424015-4 (Version None)
Quarter: 2011Q2

REPORT INFORMATION
  Report Type: 
  Country: None (occurrence: None)
  Receive Date: 20110419
  Receipt Date: 20110324
  Transmission Date: 20111010
  Serious: No
  Sender: FDA-Public Use
  Company Number: US-B.I. PHARMACEUTICALS,INC./RIDGEFIELD-2011-BP-09169BP

PATIENT
  Sex: Male

DRUGS (8)
  1. METOPROLOL [Concomitant]
     Dosage: 25 MG
     Route: 048
     Dates: start: 20110324
  2. GLYBURIDE [Concomitant]
     Indication: TYPE 2 DIABETES MELLITUS
     Route: 048
  3. PRADAXA [Suspect]
     Indication: ATRIAL FIBRILLATION
     Route: 048
     Dates: start: 20110301, end: 20110323
  4. PRADAXA [Suspect]
     Route: 048
     Dates: start: 20110324
  5. ACTOS [Concomitant]
     Indication: TYPE 2 DIABETES MELLITUS
     Route: 048
  6. CRESTOR [Concomitant]
     Route: 048
  7. LIPITOR [Concomitant]
     Route: 048
  8. AMERYL [Concomitant]
     Indication: TYPE 2 DIABETES MELLITUS
     Route: 048

REACTIONS (2)
  - EPISTAXIS [None]
  - THROMBOSIS [None]
